FAERS Safety Report 8423159 (Version 4)
Quarter: 2013Q2

REPORT INFORMATION
  Report Type: Spontaneous
  Country: US (occurrence: US)
  Receive Date: 20120223
  Receipt Date: 20130411
  Transmission Date: 20140414
  Serious: Yes (Hospitalization, Other)
  Sender: FDA-Public Use
  Company Number: US-US-EMD SERONO, INC.-7113909

PATIENT
  Age: 50 Year
  Sex: Female

DRUGS (6)
  1. REBIF [Suspect]
     Indication: MULTIPLE SCLEROSIS
     Route: 058
     Dates: start: 20091105
  2. REBIF [Suspect]
     Route: 058
     Dates: start: 20120312
  3. REBIF [Suspect]
     Route: 058
  4. REBIF [Suspect]
     Route: 058
  5. VITAMIN D /00107901/ [Concomitant]
     Indication: PRODUCT USED FOR UNKNOWN INDICATION
  6. CALCIUM [Concomitant]
     Indication: PRODUCT USED FOR UNKNOWN INDICATION

REACTIONS (6)
  - Bladder cancer [Recovering/Resolving]
  - Thrombosis [Unknown]
  - Urinary tract infection [Recovering/Resolving]
  - Complication of device insertion [Recovering/Resolving]
  - Mobility decreased [Not Recovered/Not Resolved]
  - Fatigue [Not Recovered/Not Resolved]
